FAERS Safety Report 7799570-5 (Version None)
Quarter: 2011Q4

REPORT INFORMATION
  Report Type: 
  Country: None (occurrence: None)
  Receive Date: 20111006
  Receipt Date: 20111003
  Transmission Date: 20120403
  Serious: Yes (Hospitalization)
  Sender: FDA-Public Use
  Company Number: DE-SANOFI-AVENTIS-2011SA064523

PATIENT
  Age: 59 Year
  Sex: Male
  Weight: 82 kg

DRUGS (1)
  1. INDAPAMIDE [Suspect]
     Route: 048

REACTIONS (2)
  - HEPATIC PAIN [None]
  - RENAL PAIN [None]
